FAERS Safety Report 18645922 (Version 1)
Quarter: 2020Q4

REPORT INFORMATION
  Report Type: Spontaneous
  Country: FR (occurrence: FR)
  Receive Date: 20201221
  Receipt Date: 20201221
  Transmission Date: 20210114
  Serious: Yes (Other)
  Sender: FDA-Public Use
  Company Number: FR-DRREDDYS-GER/FRA/20/0130041

PATIENT
  Age: 67 Year
  Sex: Male

DRUGS (6)
  1. SMOFKABIVEN, EMULSION POUR PERFUSION [Suspect]
     Active Substance: AMINO ACIDS\DEXTROSE\ELECTROLYTES NOS\SOYBEAN OIL
     Indication: PARENTERAL NUTRITION
     Route: 042
     Dates: start: 202008, end: 20200827
  2. DAPTOMYCIN. [Suspect]
     Active Substance: DAPTOMYCIN
     Indication: BACTERAEMIA
     Route: 042
     Dates: start: 20200816, end: 20200825
  3. ACICLOVIR [Suspect]
     Active Substance: ACYCLOVIR
     Indication: ANTIVIRAL PROPHYLAXIS
     Route: 042
     Dates: start: 20200810, end: 20200826
  4. AMOXICILLINE [Suspect]
     Active Substance: AMOXICILLIN
     Indication: BACTERAEMIA
     Route: 048
     Dates: start: 20200806, end: 20200809
  5. ACIDE CLAVULANIQUE [Suspect]
     Active Substance: CLAVULANIC ACID
     Indication: BACTERAEMIA
     Route: 048
     Dates: start: 20200806, end: 20200809
  6. MEROPENEM ANHYDRE [Suspect]
     Active Substance: MEROPENEM
     Indication: BACTERAEMIA
     Route: 042
     Dates: start: 20200818, end: 20200828

REACTIONS (2)
  - Hepatocellular injury [Recovering/Resolving]
  - Cholestasis [Recovering/Resolving]

NARRATIVE: CASE EVENT DATE: 20200820
